FAERS Safety Report 4983860-5 (Version None)
Quarter: 2006Q2

REPORT INFORMATION
  Report Type: 
  Country: None (occurrence: None)
  Receive Date: 20060426
  Receipt Date: 20051130
  Transmission Date: 20061013
  Serious: Yes (Death, Hospitalization, Other)
  Sender: FDA-Public Use
  Company Number: US-MERCK-0512USA00285

PATIENT
  Age: 64 Year
  Sex: Female
  Weight: 75 kg

DRUGS (1)
  1. VIOXX [Suspect]
     Indication: ARTHRALGIA
     Route: 048
     Dates: start: 20011212, end: 20030101

REACTIONS (30)
  - ANGINA PECTORIS [None]
  - ANGINA UNSTABLE [None]
  - ARTERIOSCLEROSIS CORONARY ARTERY [None]
  - CARDIAC FAILURE CONGESTIVE [None]
  - CARDIOMEGALY [None]
  - CELLULITIS [None]
  - CEREBROVASCULAR ACCIDENT [None]
  - CHEST PAIN [None]
  - CORONARY ARTERY INSUFFICIENCY [None]
  - DEATH [None]
  - EMOTIONAL DISORDER [None]
  - EYE OEDEMA [None]
  - HEADACHE [None]
  - HYPERSENSITIVITY [None]
  - HYPERTENSIVE CRISIS [None]
  - HYPOKALAEMIA [None]
  - MIGRAINE WITHOUT AURA [None]
  - NECK PAIN [None]
  - NEPHRITIS INTERSTITIAL [None]
  - OVERDOSE [None]
  - PAIN [None]
  - PERITONSILLAR ABSCESS [None]
  - PHARYNGITIS [None]
  - PHARYNGOLARYNGEAL PAIN [None]
  - PULMONARY OEDEMA [None]
  - RENAL FAILURE ACUTE [None]
  - RESPIRATORY DISTRESS [None]
  - RESPIRATORY FAILURE [None]
  - SEPSIS [None]
  - URETHRAL STENOSIS [None]
